FAERS Safety Report 4758938-1 (Version None)
Quarter: 2005Q3

REPORT INFORMATION
  Report Type: 
  Country: None (occurrence: None)
  Receive Date: 20050831
  Receipt Date: 20050826
  Transmission Date: 20060218
  Serious: Yes (Death, Hospitalization)
  Sender: FDA-Public Use
  Company Number: PHBS2004FR00537

PATIENT
  Age: 36 Year
  Sex: Female

DRUGS (4)
  1. DICLOFENAC SODIUM [Suspect]
  2. PARACETAMOL (NGX) (PARACETAMOL) [Suspect]
  3. KETOPROFEN [Suspect]
  4. INDOMETHACIN [Concomitant]

REACTIONS (19)
  - ALPHA TUMOUR NECROSIS FACTOR INCREASED [None]
  - ANURIA [None]
  - ATHEROSCLEROSIS [None]
  - BLOOD CREATINE PHOSPHOKINASE INCREASED [None]
  - BLOOD LACTIC ACID INCREASED [None]
  - CARDIOVASCULAR DISORDER [None]
  - CORONARY ARTERY THROMBOSIS [None]
  - ELECTROCARDIOGRAM ST SEGMENT ELEVATION [None]
  - ENCEPHALOPATHY [None]
  - ENDOTHELIN [None]
  - ENDOTHELIN INCREASED [None]
  - HEPATIC FAILURE [None]
  - INTENTIONAL MISUSE [None]
  - INTERLEUKIN LEVEL INCREASED [None]
  - MYOCARDIAL ISCHAEMIA [None]
  - OVERDOSE [None]
  - SYSTEMIC INFLAMMATORY RESPONSE SYNDROME [None]
  - VASOCONSTRICTION [None]
  - VENTRICULAR FIBRILLATION [None]
